FAERS Safety Report 9278451 (Version 1)
Quarter: 2013Q2

REPORT INFORMATION
  Report Type: Spontaneous
  Country: US (occurrence: None)
  Receive Date: 20130508
  Receipt Date: 20130508
  Transmission Date: 20140414
  Serious: No
  Sender: FDA-Public Use
  Company Number: None

PATIENT
  Sex: 0

DRUGS (1)
  1. DEXAMETHASONE SODIUM PHOSPHATE INJECTION 10 MG/ML 1 ML VIAL WESTWARD [Suspect]

REACTIONS (1)
  - Product contamination [None]
